FAERS Safety Report 15186256 (Version 2)
Quarter: 2019Q1

REPORT INFORMATION
  Report Type: Report from Study
  Country: US (occurrence: US)
  Receive Date: 20180723
  Receipt Date: 20190130
  Transmission Date: 20190417
  Serious: No
  Sender: FDA-Public Use
  Company Number: US-EXELIXIS-CABO-17011885

PATIENT
  Age: 71 Year
  Sex: Male

DRUGS (3)
  1. CABOMETYX [Suspect]
     Active Substance: CABOZANTINIB S-MALATE
     Indication: RENAL CANCER
     Dosage: 40 MG, QD
     Route: 048
     Dates: start: 20170913
  2. LATANOPROST. [Concomitant]
     Active Substance: LATANOPROST
     Dosage: UNK
  3. LISINOPRIL. [Concomitant]
     Active Substance: LISINOPRIL
     Dosage: UNK

REACTIONS (8)
  - Somnolence [Recovering/Resolving]
  - Diarrhoea [Recovering/Resolving]
  - Ear pain [Unknown]
  - Blood pressure increased [Unknown]
  - Oropharyngeal pain [Recovering/Resolving]
  - Hair colour changes [Unknown]
  - Odynophagia [Unknown]
  - Rash [Unknown]

NARRATIVE: CASE EVENT DATE: 2017
